FAERS Safety Report 7767717-2 (Version None)
Quarter: 2011Q3

REPORT INFORMATION
  Report Type: 
  Country: None (occurrence: None)
  Receive Date: 20110922
  Receipt Date: 20110908
  Transmission Date: 20111222
  Serious: Yes (Other)
  Sender: FDA-Public Use
  Company Number: US-UCBSA-040875

PATIENT
  Sex: Female
  Weight: 55.34 kg

DRUGS (4)
  1. IMURAN [Concomitant]
     Indication: CROHN'S DISEASE
     Route: 048
     Dates: start: 20110101
  2. CIMZIA [Suspect]
     Indication: CROHN'S DISEASE
     Dosage: LAST DOSE ON 24/AUG/2011
     Route: 058
     Dates: start: 20110824
  3. M.V.I. [Concomitant]
     Indication: SUPPLEMENTATION THERAPY
     Dosage: ONE TABLET FOR MANY YEARS
     Route: 048
  4. ENTOCORT EC [Concomitant]
     Indication: CROHN'S DISEASE
     Route: 048
     Dates: start: 20110801

REACTIONS (1)
  - ORAL HERPES [None]
